FAERS Safety Report 5688731-7 (Version None)
Quarter: 2008Q1

REPORT INFORMATION
  Report Type: 
  Country: None (occurrence: None)
  Receive Date: 20080328
  Receipt Date: 20080328
  Transmission Date: 20080703
  Serious: Yes (Other)
  Sender: FDA-Public Use
  Company Number: None

PATIENT
  Age: 33 Year
  Sex: Female
  Weight: 52.1637 kg

DRUGS (8)
  1. TOPAMAX [Suspect]
     Indication: CLUSTER HEADACHE
     Dosage: 100 MILLIGRAMS AM, 150 MG PM SEE DOSAGE PO
     Route: 048
     Dates: start: 20070101, end: 20080220
  2. TOPAMAX [Suspect]
     Indication: CONVULSION
     Dosage: 100 MILLIGRAMS AM, 150 MG PM SEE DOSAGE PO
     Route: 048
     Dates: start: 20070101, end: 20080220
  3. SINGULAIR [Suspect]
     Indication: ASTHMA
     Dosage: 10 MG AM SEE DOSAGE PO
     Route: 048
     Dates: start: 20050301, end: 20080327
  4. SINGULAIR [Suspect]
     Indication: HYPERSENSITIVITY
     Dosage: 10 MG AM SEE DOSAGE PO
     Route: 048
     Dates: start: 20050301, end: 20080327
  5. ALLEGRA [Concomitant]
  6. LAMICTAL [Concomitant]
  7. LEXAPRO [Concomitant]
  8. WELLBUTRIN XL [Concomitant]

REACTIONS (6)
  - ANXIETY [None]
  - CONVULSION [None]
  - DEPRESSION [None]
  - DRUG THERAPY CHANGED [None]
  - DYSGRAPHIA [None]
  - TREMOR [None]
